FAERS Safety Report 17114591 (Version 1)
Quarter: 2019Q4

REPORT INFORMATION
  Report Type: Spontaneous
  Country: SE (occurrence: SE)
  Receive Date: 20191205
  Receipt Date: 20191205
  Transmission Date: 20200122
  Serious: Yes (Hospitalization)
  Sender: FDA-Public Use
  Company Number: SE-ACCORD-163630

PATIENT
  Age: 75 Year
  Sex: Female

DRUGS (12)
  1. ALUMINIUM HYDROXIDE/MAGNESIUM HYDROXIDE [Concomitant]
     Active Substance: ALUMINUM HYDROXIDE\MAGNESIUM HYDROXIDE
  2. CLOPIDOGREL [Concomitant]
     Active Substance: CLOPIDOGREL BISULFATE
  3. ZOLEDRONIC ACID. [Concomitant]
     Active Substance: ZOLEDRONIC ACID
  4. CALCICHEW-D3 CITRON [Concomitant]
  5. ALVEDON [Concomitant]
     Active Substance: ACETAMINOPHEN
  6. PACLITAXEL/PACLITAXEL LIPOSOME [Suspect]
     Active Substance: PACLITAXEL
     Indication: BREAST CANCER METASTATIC
     Dosage: COURSE 2 ON 14/10
  7. BEHEPAN [Concomitant]
  8. MINDIAB [Concomitant]
     Active Substance: GLIPIZIDE
  9. NOVORAPID [Concomitant]
     Active Substance: INSULIN ASPART
  10. LEVAXIN [Concomitant]
     Active Substance: LEVOTHYROXINE SODIUM
  11. MOXALOLE [Concomitant]
     Active Substance: POLYETHYLENE GLYCOL 3350\POTASSIUM CHLORIDE\SODIUM BICARBONATE\SODIUM CHLORIDE
  12. PANTOPRAZOLE [Concomitant]
     Active Substance: PANTOPRAZOLE

REACTIONS (1)
  - Interstitial lung disease [Recovering/Resolving]

NARRATIVE: CASE EVENT DATE: 20191023
